FAERS Safety Report 9256189 (Version 1)
Quarter: 2013Q2

REPORT INFORMATION
  Report Type: Spontaneous
  Country: US (occurrence: US)
  Receive Date: 20130425
  Receipt Date: 20130425
  Transmission Date: 20140414
  Serious: No
  Sender: FDA-Public Use
  Company Number: US-AMGEN-USASP2012064963

PATIENT
  Sex: Male
  Weight: 84.35 kg

DRUGS (5)
  1. NEULASTA [Suspect]
     Indication: CHEMOTHERAPY
     Dosage: 6 MG, UNK
     Route: 058
     Dates: start: 20120510
  2. 5 FU [Concomitant]
     Indication: CHEMOTHERAPY
     Dosage: UNK
     Route: 042
  3. 5 FU [Concomitant]
     Indication: GASTROOESOPHAGEAL CANCER
  4. LEUCOVORIN                         /00566701/ [Concomitant]
     Indication: GASTROOESOPHAGEAL CANCER
     Route: 042
  5. TAXOTERE [Concomitant]
     Indication: GASTROOESOPHAGEAL CANCER
     Route: 042

REACTIONS (1)
  - Inappropriate schedule of drug administration [Unknown]
